FAERS Safety Report 13727881 (Version 2)
Quarter: 2017Q3

REPORT INFORMATION
  Report Type: Spontaneous
  Country: US (occurrence: US)
  Receive Date: 20170707
  Receipt Date: 20170922
  Transmission Date: 20171127
  Serious: Yes (Hospitalization)
  Sender: FDA-Public Use
  Company Number: US-JNJFOC-20170414116

PATIENT
  Age: 65 Year
  Sex: Female

DRUGS (1)
  1. XARELTO [Suspect]
     Active Substance: RIVAROXABAN
     Indication: PULMONARY EMBOLISM
     Route: 048
     Dates: start: 20150420, end: 20150427

REACTIONS (2)
  - Haemorrhagic erosive gastritis [Recovering/Resolving]
  - Gastrointestinal angiodysplasia haemorrhagic [Unknown]

NARRATIVE: CASE EVENT DATE: 201504
